FAERS Safety Report 8875905 (Version 1)
Quarter: 2012Q4

REPORT INFORMATION
  Report Type: 
  Country: US (occurrence: US)
  Receive Date: 20121023
  Receipt Date: 20121023
  Transmission Date: 20130627
  Serious: Yes (Hospitalization)
  Sender: FDA-Public Use
  Company Number: US-GLAXOSMITHKLINE-A0899128A

PATIENT
  Age: 62 Year
  Sex: Female

DRUGS (2)
  1. AVANDIA [Suspect]
     Indication: DIABETES MELLITUS
     Dosage: 8MG Per day
     Route: 048
     Dates: start: 2000
  2. AVANDAMET [Suspect]
     Indication: DIABETES MELLITUS
     Route: 048
     Dates: start: 2006

REACTIONS (7)
  - Heart valve incompetence [Not Recovered/Not Resolved]
  - Cardiac failure congestive [Unknown]
  - Heart rate irregular [Unknown]
  - Heart rate increased [Unknown]
  - Dizziness [Unknown]
  - Tremor [Unknown]
  - Oxygen supplementation [Unknown]
